FAERS Safety Report 9158510 (Version 1)
Quarter: 2013Q1

REPORT INFORMATION
  Report Type: Report from Study
  Country: SK (occurrence: SK)
  Receive Date: 20130312
  Receipt Date: 20130312
  Transmission Date: 20140127
  Serious: Yes (Death, Disabling)
  Sender: FDA-Public Use
  Company Number: SK-CELGENEUS-260-20785-07091331

PATIENT
  Age: 67 Year
  Sex: Female

DRUGS (11)
  1. THALIDOMIDE [Suspect]
     Indication: PLASMA CELL MYELOMA
     Dosage: 100 MILLIGRAM
     Route: 048
     Dates: start: 20070718, end: 2007
  2. CONCOR [Concomitant]
     Indication: HYPERTENSION
     Dosage: 2.5 MILLIGRAM
     Route: 048
  3. TRITACE [Concomitant]
     Indication: HYPERTENSION
     Dosage: 5 MILLIGRAM
     Route: 048
  4. VESSEL DUE [Concomitant]
     Indication: THROMBOSIS PROPHYLAXIS
     Dosage: 250 IU (INTERNATIONAL UNIT)
     Route: 048
  5. PREDUCTAL [Concomitant]
     Indication: MYOCARDIAL ISCHAEMIA
     Dosage: 20 MILLIGRAM
     Route: 048
  6. ZOMETA [Concomitant]
     Indication: BONE DISORDER
     Dosage: 4 MILLIGRAM
     Route: 041
  7. ZOMETA [Concomitant]
     Indication: PROPHYLAXIS
  8. EPREX [Concomitant]
     Indication: ANAEMIA
     Dosage: 40000 IU (INTERNATIONAL UNIT)
     Route: 058
  9. SEVREDOL [Concomitant]
     Indication: ANALGESIC THERAPY
     Dosage: 10 MILLIGRAM
     Route: 048
  10. PALLADONE [Concomitant]
     Indication: ANALGESIC THERAPY
     Dosage: 16 MILLIGRAM
     Route: 048
  11. FRAXIPARIN [Concomitant]
     Indication: THROMBOSIS PROPHYLAXIS
     Dosage: .3 MILLILITER
     Route: 058
     Dates: start: 20070718

REACTIONS (6)
  - Plasma cell myeloma [Fatal]
  - Somnolence [None]
  - Stupor [None]
  - Asthenia [None]
  - Paraparesis [None]
  - Back pain [None]
